FAERS Safety Report 25708341 (Version 1)
Quarter: 2025Q3

REPORT INFORMATION
  Report Type: Spontaneous
  Country: EU (occurrence: EU)
  Receive Date: 20250821
  Receipt Date: 20250821
  Transmission Date: 20251021
  Serious: Yes (Hospitalization)
  Sender: CHEPLAPHARM
  Company Number: None

PATIENT
  Age: 75 Year
  Sex: Female
  Weight: 77 kg

DRUGS (19)
  1. CLONAZEPAM [Interacting]
     Active Substance: CLONAZEPAM
     Indication: Trigeminal neuralgia
     Dosage: DAILY DOSE: 1 MILLIGRAM
     Route: 042
     Dates: start: 20250715, end: 20250716
  2. CLONAZEPAM [Interacting]
     Active Substance: CLONAZEPAM
     Indication: Trigeminal neuralgia
     Dosage: DAILY DOSE: 1.5 MILLIGRAM
     Route: 042
     Dates: start: 20250716, end: 20250717
  3. CLONAZEPAM [Interacting]
     Active Substance: CLONAZEPAM
     Indication: Trigeminal neuralgia
     Dosage: RIVOTRIL TO 2 AMPOULES/24 HOURS, OR 2 MG/24 HOURS, REDUCED THE DOSE OF RIVOTRIL TO 1.5 MG/24 HOUR...
     Route: 042
     Dates: start: 20250717, end: 20250722
  4. CLONAZEPAM [Interacting]
     Active Substance: CLONAZEPAM
     Indication: Trigeminal neuralgia
     Dosage: DAILY DOSE: 9 DROP
     Route: 048
     Dates: start: 20250723, end: 20250723
  5. TEGRETOL [Interacting]
     Active Substance: CARBAMAZEPINE
     Indication: Trigeminal neuralgia
     Dosage: SUSTAINED RELEASE FORM?DAILY DOSE: 400 MILLIGRAM
     Route: 048
     Dates: start: 20090101, end: 20250710
  6. TEGRETOL [Interacting]
     Active Substance: CARBAMAZEPINE
     Indication: Trigeminal neuralgia
     Dosage: IMMEDIATE RELEASE FORM?DAILY DOSE: 1200 MILLIGRAM
     Route: 048
     Dates: start: 20250710, end: 20250711
  7. TEGRETOL [Interacting]
     Active Substance: CARBAMAZEPINE
     Indication: Trigeminal neuralgia
     Dates: start: 20250714, end: 20250715
  8. TRILEPTAL [Suspect]
     Active Substance: OXCARBAZEPINE
     Dates: start: 20250715
  9. TRILEPTAL [Suspect]
     Active Substance: OXCARBAZEPINE
     Dates: start: 20250717
  10. TRILEPTAL [Suspect]
     Active Substance: OXCARBAZEPINE
     Dates: start: 20250718
  11. XARELTO [Concomitant]
     Active Substance: RIVAROXABAN
     Indication: Atrial fibrillation
     Dosage: DAILY DOSE: 20 MILLIGRAM
     Route: 048
  12. NEBIVOLOL [Concomitant]
     Active Substance: NEBIVOLOL
     Indication: Atrial fibrillation
     Dosage: DAILY DOSE: 10 MILLIGRAM
     Route: 048
  13. LIPTRUZET [Concomitant]
     Active Substance: ATORVASTATIN CALCIUM\EZETIMIBE
     Indication: Dyslipidaemia
     Dosage: DAILY DOSE: 1 DOSAGE FORM
     Route: 048
  14. JARDIANCE [Concomitant]
     Active Substance: EMPAGLIFLOZIN
     Indication: Cardiac failure
     Dosage: DAILY DOSE: 10 MILLIGRAM
     Route: 048
  15. INSPRA [Concomitant]
     Active Substance: EPLERENONE
     Indication: Cardiac failure
     Dosage: DAILY DOSE: 25 MILLIGRAM
     Route: 048
  16. ENTRESTO [Concomitant]
     Active Substance: SACUBITRIL\VALSARTAN
     Indication: Cardiac failure
     Dosage: DAILY DOSE: 2 DOSAGE FORM
     Route: 048
  17. LEVOTHYROXINE [Concomitant]
     Active Substance: LEVOTHYROXINE
     Indication: Hypothyroidism
     Dosage: MICROGRAMS,?BREAKABLE TABLET?DAILY DOSE: 75 MILLIGRAM
     Route: 048
  18. ASPIRIN [Concomitant]
     Active Substance: ASPIRIN
     Indication: Cardiovascular event prophylaxis
     Dosage: DAILY DOSE: 75 MILLIGRAM
     Route: 048
  19. PANTOPRAZOLE [Concomitant]
     Active Substance: PANTOPRAZOLE
     Indication: Gastrooesophageal reflux disease
     Dosage: DAILY DOSE: 40 MILLIGRAM
     Route: 048

REACTIONS (6)
  - Somnolence [Recovered/Resolved]
  - Vomiting [Recovered/Resolved]
  - Hypertensive crisis [Recovered/Resolved]
  - Toxicity to various agents [Recovered/Resolved]
  - Potentiating drug interaction [Recovered/Resolved]
  - Off label use [Recovered/Resolved]

NARRATIVE: CASE EVENT DATE: 20250715
